FAERS Safety Report 16965724 (Version 1)
Quarter: 2019Q4

REPORT INFORMATION
  Report Type: Other
  Country: US (occurrence: US)
  Receive Date: 20191028
  Receipt Date: 20191028
  Transmission Date: 20200122
  Serious: Yes (Other)
  Sender: FDA-Public Use
  Company Number: US-ACORDA-ACO_161607_2019

PATIENT
  Age: 77 Year
  Sex: Female

DRUGS (3)
  1. CARBIDOPA AND LEVODOPA [Concomitant]
     Active Substance: CARBIDOPA\LEVODOPA
     Dosage: 50/200 MG, 1 TABLET
     Route: 065
  2. INBRIJA [Suspect]
     Active Substance: LEVODOPA
     Indication: PARKINSON^S DISEASE
     Dosage: 42 MILLIGRAM, PRN (INHALE CONTENTS OF TWO CAPSULES UP TO FIVE TIMES A DAY)
     Dates: start: 20190914, end: 20191010
  3. CARBIDOPA AND LEVODOPA [Concomitant]
     Active Substance: CARBIDOPA\LEVODOPA
     Indication: PRODUCT USED FOR UNKNOWN INDICATION
     Dosage: 25/100 MG 3.5 TABLETS
     Route: 065

REACTIONS (4)
  - Fall [Unknown]
  - Fatigue [Unknown]
  - Circulatory collapse [Unknown]
  - Lethargy [Unknown]

NARRATIVE: CASE EVENT DATE: 20191007
